FAERS Safety Report 10455718 (Version 1)
Quarter: 2014Q3

REPORT INFORMATION
  Report Type: Spontaneous
  Country: US (occurrence: None)
  Receive Date: 20140818
  Receipt Date: 20140818
  Transmission Date: 20150326
  Serious: Yes (Hospitalization)
  Sender: FDA-Public Use
  Company Number: 20111130VANCO2485

PATIENT
  Age: 82 Year
  Sex: Female

DRUGS (12)
  1. CALCIUM (CALCIUM) [Concomitant]
     Active Substance: CALCIUM
  2. CRESTOR [Concomitant]
     Active Substance: ROSUVASTATIN CALCIUM
  3. POTASSIUM (POTASSIUM) [Concomitant]
     Active Substance: POTASSIUM
  4. VANCOCIN [Suspect]
     Active Substance: VANCOMYCIN HYDROCHLORIDE
     Indication: CLOSTRIDIUM DIFFICILE INFECTION
     Dosage: 1000 MG (250 MG, 4 IN 1 D), ORAL
     Route: 048
     Dates: start: 20111104, end: 20111111
  5. NEURONTIN [Concomitant]
     Active Substance: GABAPENTIN
  6. PROBIOTIC [Concomitant]
     Active Substance: PROBIOTICS NOS
  7. ECOTRIN [Concomitant]
     Active Substance: ASPIRIN
  8. PRILOSEC (OMEPRAZOLE) [Concomitant]
     Active Substance: OMEPRAZOLE MAGNESIUM
  9. TOPROL XL [Concomitant]
     Active Substance: METOPROLOL SUCCINATE
  10. LOPID [Concomitant]
     Active Substance: GEMFIBROZIL
  11. NORVASC (AMLODIPINE) [Concomitant]
  12. CELEXA [Concomitant]
     Active Substance: CITALOPRAM HYDROBROMIDE

REACTIONS (2)
  - Drug ineffective [None]
  - Infection [None]

NARRATIVE: CASE EVENT DATE: 20111124
